FAERS Safety Report 20696647 (Version 1)
Quarter: 2022Q2

REPORT INFORMATION
  Report Type: Spontaneous
  Country: JP (occurrence: JP)
  Receive Date: 20220411
  Receipt Date: 20220411
  Transmission Date: 20220721
  Serious: Yes (Death)
  Sender: FDA-Public Use
  Company Number: JP-ACTELION-A-CH2017-163751

PATIENT
  Age: 67 Year
  Sex: Male
  Weight: 57 kg

DRUGS (17)
  1. UPTRAVI [Suspect]
     Active Substance: SELEXIPAG
     Indication: Pulmonary arterial hypertension
     Dosage: 0.2 MG, BID
     Route: 048
     Dates: start: 20171010, end: 20171019
  2. UPTRAVI [Suspect]
     Active Substance: SELEXIPAG
     Dosage: 0.2 MG, BID
     Route: 048
     Dates: start: 20171122, end: 20171204
  3. UPTRAVI [Suspect]
     Active Substance: SELEXIPAG
     Dosage: 0.4 MG, BID
     Route: 048
     Dates: start: 20171205, end: 20171225
  4. UPTRAVI [Suspect]
     Active Substance: SELEXIPAG
     Dosage: 0.6 MG, BID
     Route: 048
     Dates: start: 20171226, end: 20180205
  5. UPTRAVI [Suspect]
     Active Substance: SELEXIPAG
     Dosage: 0.8 MG, BID
     Route: 048
     Dates: start: 20180206, end: 20180321
  6. UPTRAVI [Suspect]
     Active Substance: SELEXIPAG
     Dosage: 1 MG, BID
     Route: 048
     Dates: start: 20180322, end: 20180716
  7. UPTRAVI [Suspect]
     Active Substance: SELEXIPAG
     Dosage: 1.2 MG, BID
     Route: 048
     Dates: start: 20180717, end: 20180910
  8. UPTRAVI [Suspect]
     Active Substance: SELEXIPAG
     Dosage: 1.4 MG, BID
     Route: 048
     Dates: start: 20180911, end: 20200316
  9. UPTRAVI [Suspect]
     Active Substance: SELEXIPAG
     Dosage: 0.2 MG, BID
     Route: 048
     Dates: start: 20200317, end: 20200924
  10. ADCIRCA [Concomitant]
     Active Substance: TADALAFIL
     Indication: Pulmonary arterial hypertension
     Dosage: 40 MG, QD
     Route: 048
     Dates: start: 20170407
  11. OPSUMIT [Concomitant]
     Active Substance: MACITENTAN
     Indication: Pulmonary arterial hypertension
     Dosage: 10 MG, UNK
     Route: 048
     Dates: start: 20170414
  12. SAMSCA [Concomitant]
     Active Substance: TOLVAPTAN
     Dosage: 15 MG, UNK
  13. FUROSEMIDE [Concomitant]
     Active Substance: FUROSEMIDE
     Dosage: 80 MG, UNK
  14. SPIRONOLACTONE [Concomitant]
     Active Substance: SPIRONOLACTONE
     Dosage: 100 MG, UNK
  15. TRICHLORMETHIAZIDE [Concomitant]
     Active Substance: TRICHLORMETHIAZIDE
     Dosage: 1 MG, UNK
  16. LINAGLIPTIN [Concomitant]
     Active Substance: LINAGLIPTIN
     Indication: Type 2 diabetes mellitus
     Dosage: 5 MG, UNK
     Dates: start: 20180612
  17. SODIUM FERROUS CITRATE [Concomitant]
     Active Substance: SODIUM FERROUS CITRATE
     Indication: Iron deficiency anaemia
     Dosage: 100 MG, UNK

REACTIONS (2)
  - Pulmonary arterial hypertension [Fatal]
  - Diarrhoea [Not Recovered/Not Resolved]

NARRATIVE: CASE EVENT DATE: 20171011
